FAERS Safety Report 4415237-5 (Version None)
Quarter: 2004Q3

REPORT INFORMATION
  Report Type: 
  Country: None (occurrence: None)
  Receive Date: 20040804
  Receipt Date: 20040708
  Transmission Date: 20050211
  Serious: Yes (Other)
  Sender: FDA-Public Use
  Company Number: JP-GLAXOSMITHKLINE-B0338745A

PATIENT
  Sex: Male

DRUGS (4)
  1. ZANTAC [Suspect]
     Indication: GASTRITIS
     Dosage: 150MG TWICE PER DAY
     Route: 048
     Dates: start: 20030805, end: 20030814
  2. BUFFERIN [Suspect]
     Indication: THROMBOTIC STROKE
     Dosage: 81MG PER DAY
     Route: 048
     Dates: start: 20030805, end: 20030814
  3. ONEALFA [Suspect]
     Indication: OSTEOPOROSIS
     Dosage: 1MG PER DAY
     Route: 048
     Dates: start: 20030805, end: 20030814
  4. MUCOSTA [Suspect]
     Indication: GASTRITIS
     Dosage: 100MG THREE TIMES PER DAY
     Route: 048
     Dates: start: 20030805, end: 20030814

REACTIONS (4)
  - AGRANULOCYTOSIS [None]
  - BLISTER [None]
  - GENERALISED ERYTHEMA [None]
  - TOXIC EPIDERMAL NECROLYSIS [None]
